FAERS Safety Report 18444859 (Version 1)
Quarter: 2020Q4

REPORT INFORMATION
  Report Type: Spontaneous
  Country: US (occurrence: US)
  Receive Date: 20201030
  Receipt Date: 20201030
  Transmission Date: 20210114
  Serious: No
  Sender: FDA-Public Use
  Company Number: US-AMGEN-USASP2020175075

PATIENT
  Age: 52 Year
  Sex: Female

DRUGS (10)
  1. CITALOPRAM [Concomitant]
     Active Substance: CITALOPRAM HYDROBROMIDE
  2. HYDROCHLOROTHIAZIDE. [Concomitant]
     Active Substance: HYDROCHLOROTHIAZIDE
  3. VITAMIN D [ERGOCALCIFEROL] [Concomitant]
     Active Substance: ERGOCALCIFEROL
  4. BIOTIN [Concomitant]
     Active Substance: BIOTIN
  5. MAGNESIUM [Concomitant]
     Active Substance: MAGNESIUM
  6. OTEZLA [Suspect]
     Active Substance: APREMILAST
     Indication: PSORIASIS
     Dosage: 30 MILLIGRAM, BID
     Route: 048
     Dates: start: 20201002
  7. LISINOPRIL. [Concomitant]
     Active Substance: LISINOPRIL
  8. SUMATRIPTAN. [Concomitant]
     Active Substance: SUMATRIPTAN
  9. MIRTAZAPINE. [Concomitant]
     Active Substance: MIRTAZAPINE
  10. MULTIVITAMINS [VITAMINS NOS] [Concomitant]
     Active Substance: VITAMINS

REACTIONS (2)
  - Abdominal discomfort [Recovering/Resolving]
  - Diarrhoea [Recovered/Resolved]

NARRATIVE: CASE EVENT DATE: 20201005
